FAERS Safety Report 18226682 (Version 3)
Quarter: 2020Q3

REPORT INFORMATION
  Report Type: Spontaneous
  Country: FR (occurrence: FR)
  Receive Date: 20200903
  Receipt Date: 20200909
  Transmission Date: 20201103
  Serious: Yes (Death, Hospitalization)
  Sender: FDA-Public Use
  Company Number: FR-SA-2020SA236629

PATIENT

DRUGS (1)
  1. ALDURAZYME [Suspect]
     Active Substance: LARONIDASE
     Indication: MUCOPOLYSACCHARIDOSIS I
     Dosage: 5 DF, QW, 5 VIALS/ WEEK
     Route: 041
     Dates: start: 2005

REACTIONS (2)
  - Condition aggravated [Fatal]
  - Malaise [Fatal]

NARRATIVE: CASE EVENT DATE: 20200720
